FAERS Safety Report 7739713-2 (Version None)
Quarter: 2011Q3

REPORT INFORMATION
  Report Type: 
  Country: None (occurrence: None)
  Receive Date: 20110909
  Receipt Date: 20110906
  Transmission Date: 20111222
  Serious: Yes (Other)
  Sender: FDA-Public Use
  Company Number: JP-PFIZER INC-2011208793

PATIENT
  Age: 72 Year
  Sex: Female
  Weight: 51.6 kg

DRUGS (4)
  1. SILDENAFIL CITRATE [Suspect]
     Indication: PULMONARY HYPERTENSION
     Dosage: 10 MG, 2X/DAY
     Route: 048
     Dates: start: 20100925, end: 20100926
  2. SILDENAFIL CITRATE [Suspect]
     Dosage: 20 MG, 1X/DAY
     Route: 048
     Dates: start: 20100927, end: 20101109
  3. QVAR 40 [Concomitant]
     Dosage: UNK
     Route: 055
  4. AIROMIR [Concomitant]
     Dosage: UNK
     Route: 055

REACTIONS (3)
  - DIZZINESS [None]
  - VISUAL IMPAIRMENT [None]
  - BRONCHITIS [None]
